FAERS Safety Report 5021851-9 (Version None)
Quarter: 2006Q2

REPORT INFORMATION
  Report Type: 
  Country: None (occurrence: None)
  Receive Date: 20060609
  Receipt Date: 20031125
  Transmission Date: 20061013
  Serious: Yes (Life-Threatening, Other)
  Sender: FDA-Public Use
  Company Number: FR-AVENTIS-200314474FR

PATIENT
  Age: 17 Year
  Sex: Female
  Weight: 61 kg

DRUGS (6)
  1. KETEK [Suspect]
     Indication: TONSILLITIS
     Route: 048
     Dates: start: 20030924, end: 20030924
  2. OROPIVALONE [Suspect]
     Route: 048
     Dates: start: 20030923, end: 20030925
  3. DOLIPRANE [Suspect]
     Route: 048
     Dates: start: 20031031
  4. ORACEFAL [Concomitant]
     Indication: TONSILLITIS
     Route: 048
     Dates: start: 20031101, end: 20031101
  5. NUREFLEX [Concomitant]
     Indication: TONSILLITIS
     Route: 048
     Dates: start: 20031031, end: 20031031
  6. IBUPROFEN [Concomitant]
     Indication: TONSILLITIS
     Route: 048
     Dates: start: 20031101, end: 20031101

REACTIONS (12)
  - ACUTE RESPIRATORY DISTRESS SYNDROME [None]
  - EYE INJURY [None]
  - GASTROINTESTINAL INJURY [None]
  - GENITAL LESION [None]
  - HEPATOCELLULAR DAMAGE [None]
  - LEUKOPENIA [None]
  - PHARYNGEAL LESION [None]
  - PNEUMOTHORAX [None]
  - RHABDOMYOLYSIS [None]
  - SHOCK [None]
  - THROMBOCYTOPENIA [None]
  - TOXIC EPIDERMAL NECROLYSIS [None]
